FAERS Safety Report 9969581 (Version 1)
Quarter: 2014Q1

REPORT INFORMATION
  Report Type: Spontaneous
  Country: DE (occurrence: DE)
  Receive Date: 20140306
  Receipt Date: 20140306
  Transmission Date: 20141002
  Serious: Yes (Hospitalization, Other)
  Sender: FDA-Public Use
  Company Number: DE-DRREDDYS-GER/GER/14/0038638

PATIENT
  Sex: Male
  Weight: 3.83 kg

DRUGS (4)
  1. LAMOTRIGINE [Suspect]
     Indication: PRODUCT USED FOR UNKNOWN INDICATION
     Route: 064
     Dates: start: 20111010, end: 20120721
  2. LAMOTRIGINE [Suspect]
     Route: 063
  3. FOLSAURE [Concomitant]
     Indication: PRODUCT USED FOR UNKNOWN INDICATION
     Route: 064
  4. FOLSAURE [Concomitant]
     Route: 063

REACTIONS (9)
  - Liver disorder [Recovered/Resolved]
  - Hydrocele [Unknown]
  - Hypotonia [Unknown]
  - Feeding disorder neonatal [Recovered/Resolved]
  - Neonatal hepatomegaly [Unknown]
  - Cholelithiasis [Unknown]
  - Crying [Unknown]
  - Exposure during breast feeding [Unknown]
  - Foetal exposure during pregnancy [Unknown]
